FAERS Safety Report 10167721 (Version 2)
Quarter: 2014Q2

REPORT INFORMATION
  Report Type: Spontaneous
  Country: US (occurrence: US)
  Receive Date: 20140512
  Receipt Date: 20140626
  Transmission Date: 20141212
  Serious: Yes (Hospitalization, Other)
  Sender: FDA-Public Use
  Company Number: US-PFIZER INC-2014129254

PATIENT
  Age: 79 Year
  Sex: Male
  Weight: 86.2 kg

DRUGS (11)
  1. TIKOSYN [Suspect]
     Indication: VENTRICULAR FIBRILLATION
     Dosage: UNK, 2X/DAY
     Route: 048
     Dates: start: 201401, end: 20140507
  2. PRILOSEC [Suspect]
     Dosage: UNK
  3. ALTACE [Concomitant]
     Dosage: UNK, 1X/DAY
  4. BABY ASPIRIN [Concomitant]
     Dosage: UNK
  5. CITALOPRAM [Concomitant]
     Dosage: UNK, 1X/DAY
  6. COUMADIN [Concomitant]
     Dosage: 2.5 MG, 1X/DAY
  7. METOPROLOL [Concomitant]
     Dosage: UNK, 2X/DAY
  8. PLAVIX [Concomitant]
     Dosage: 75 MG, 1X/DAY
  9. ROPINIROLE [Concomitant]
     Indication: RESTLESS LEGS SYNDROME
     Dosage: UNK, 3X/DAY
  10. PREDNISONE [Concomitant]
     Dosage: UNK, 3X/DAY
  11. PANTOPRAZOLE [Concomitant]
     Dosage: 40 MG, 2X/DAY

REACTIONS (11)
  - Atrial fibrillation [Unknown]
  - Ventricular fibrillation [Unknown]
  - Cardiac arrest [Unknown]
  - Blood glucose increased [Unknown]
  - Urticaria [Unknown]
  - Oral disorder [Unknown]
  - Oropharyngeal pain [Unknown]
  - Dyspnoea [Unknown]
  - Asthenia [Unknown]
  - Weight decreased [Unknown]
  - Body height decreased [Unknown]
